FAERS Safety Report 25915366 (Version 1)
Quarter: 2025Q4

REPORT INFORMATION
  Report Type: Spontaneous
  Country: US (occurrence: US)
  Receive Date: 20251013
  Receipt Date: 20251013
  Transmission Date: 20260117
  Serious: No
  Sender: ANI
  Company Number: US-ANIPHARMA-2025-US-034440

PATIENT
  Sex: Male
  Weight: 68.04 kg

DRUGS (10)
  1. CORTICOTROPIN [Suspect]
     Active Substance: CORTICOTROPIN
     Indication: Rheumatoid arthritis
     Dosage: INJECT 80 UNITS UNDER THE SKIN TWICE A WEEK.
     Route: 058
  2. TRAMADOL [Concomitant]
     Active Substance: TRAMADOL
  3. NORCO [Concomitant]
     Active Substance: ACETAMINOPHEN\HYDROCODONE BITARTRATE
  4. OLUMIANT [Concomitant]
     Active Substance: BARICITINIB
  5. MEDROL [Concomitant]
     Active Substance: METHYLPREDNISOLONE
  6. OMEPRAZOLE [Concomitant]
     Active Substance: OMEPRAZOLE
  7. CITALOPRAM [Concomitant]
     Active Substance: CITALOPRAM
  8. TRAZODONE [Concomitant]
     Active Substance: TRAZODONE HYDROCHLORIDE
  9. VITAMIN D3 [Concomitant]
     Active Substance: CHOLECALCIFEROL
  10. PRAVASTATIN [Concomitant]
     Active Substance: PRAVASTATIN

REACTIONS (1)
  - Human anaplasmosis [Unknown]
